FAERS Safety Report 23673970 (Version 1)
Quarter: 2024Q1

REPORT INFORMATION
  Report Type: Spontaneous
  Country: JP (occurrence: JP)
  Receive Date: 20240326
  Receipt Date: 20240326
  Transmission Date: 20240410
  Serious: Yes (Other)
  Sender: FDA-Public Use
  Company Number: JP-PFIZER INC-202400070453

PATIENT
  Sex: Male

DRUGS (3)
  1. PAXLOVID [Suspect]
     Active Substance: NIRMATRELVIR\RITONAVIR
     Indication: COVID-19 treatment
     Dosage: UNK
     Route: 048
  2. PREDNISOLONE [Concomitant]
     Active Substance: PREDNISOLONE
     Route: 048
  3. REMDESIVIR [Concomitant]
     Active Substance: REMDESIVIR
     Dosage: UNK

REACTIONS (3)
  - Renal impairment [Recovered/Resolved]
  - Therapeutic product effect incomplete [Unknown]
  - Inappropriate schedule of product administration [Unknown]
